FAERS Safety Report 14814143 (Version 2)
Quarter: 2018Q3

REPORT INFORMATION
  Report Type: Spontaneous
  Country: GR (occurrence: GR)
  Receive Date: 20180426
  Receipt Date: 20180720
  Transmission Date: 20181010
  Serious: Yes (Death, Hospitalization, Other)
  Sender: FDA-Public Use
  Company Number: GR-VALIDUS PHARMACEUTICALS LLC-GR-2018VAL000684

PATIENT
  Age: 76 Year
  Sex: Female

DRUGS (8)
  1. PIPERACILLIN/TAZOBACTAM [Suspect]
     Active Substance: PIPERACILLIN SODIUM\TAZOBACTAM SODIUM
     Indication: SEPSIS
     Dosage: UNK
     Route: 065
  2. METHOTREXATE. [Suspect]
     Active Substance: METHOTREXATE
     Indication: PRODUCT USED FOR UNKNOWN INDICATION
     Dosage: UNK
     Route: 065
  3. CICLOSPORIN [Suspect]
     Active Substance: CYCLOSPORINE
     Indication: PRODUCT USED FOR UNKNOWN INDICATION
     Dosage: UNK
     Route: 065
  4. VANCOMYCIN [Suspect]
     Active Substance: VANCOMYCIN
     Indication: SEPSIS
     Dosage: UNK
     Route: 065
  5. FUROSEMIDE. [Suspect]
     Active Substance: FUROSEMIDE
     Indication: PULMONARY OEDEMA
     Dosage: UNK, 8 PUSHES
     Route: 042
  6. HYDROCORTISONE. [Suspect]
     Active Substance: HYDROCORTISONE
     Indication: SEPSIS
     Dosage: UNK
     Route: 065
  7. AMIKACIN SULFATE. [Suspect]
     Active Substance: AMIKACIN SULFATE
     Indication: SEPSIS
     Dosage: UNK
     Route: 065
  8. PREDNISOLONE. [Concomitant]
     Active Substance: PREDNISOLONE
     Indication: PRODUCT USED FOR UNKNOWN INDICATION
     Dosage: UNK

REACTIONS (10)
  - Pain [Fatal]
  - Sepsis [Fatal]
  - Pyrexia [Fatal]
  - Anuria [Fatal]
  - Chest pain [Fatal]
  - Abdominal pain upper [Fatal]
  - Drug ineffective [Fatal]
  - Haemolysis [Fatal]
  - Bacteraemia [Fatal]
  - Dyspnoea [Fatal]
